FAERS Safety Report 19172666 (Version 2)
Quarter: 2021Q2

REPORT INFORMATION
  Report Type: Report from Study
  Country: US (occurrence: US)
  Receive Date: 20210423
  Receipt Date: 20210511
  Transmission Date: 20210717
  Serious: Yes (Other)
  Sender: FDA-Public Use
  Company Number: US-ROCHE-2710313

PATIENT
  Age: 33 Year
  Sex: Male
  Weight: 86.5 kg

DRUGS (9)
  1. VENETOCLAX. [Suspect]
     Active Substance: VENETOCLAX
     Indication: CHRONIC LYMPHOCYTIC LEUKAEMIA
     Dosage: DAYS 1?7 CYCLE 3
     Route: 048
     Dates: start: 20200513
  2. OBINUTUZUMAB. [Suspect]
     Active Substance: OBINUTUZUMAB
     Indication: CHRONIC LYMPHOCYTIC LEUKAEMIA
     Dosage: ON DAY 1, CYCLE 1 LAST ADMINISTERED DATE: 13/MAY/2020
     Route: 042
     Dates: start: 20200513
  3. VENETOCLAX. [Suspect]
     Active Substance: VENETOCLAX
     Dosage: DAYS 8?14, CYCLE 3
     Route: 048
  4. IBRUTINIB [Suspect]
     Active Substance: IBRUTINIB
     Indication: CHRONIC LYMPHOCYTIC LEUKAEMIA
     Dosage: ON DAYS 1?28, CYCLES 1?19; LAST ADMINISTERED DATE: 13?MAY?2020
     Route: 048
     Dates: start: 20200513
  5. OBINUTUZUMAB. [Suspect]
     Active Substance: OBINUTUZUMAB
     Dosage: ON DAY 2, CYCLE 1
     Route: 042
  6. VENETOCLAX. [Suspect]
     Active Substance: VENETOCLAX
     Dosage: DAYS 22?28, CYCLE 3
     Route: 048
  7. VENETOCLAX. [Suspect]
     Active Substance: VENETOCLAX
     Dosage: DAYS 15?21, CYCLE 3
     Route: 048
  8. OBINUTUZUMAB. [Suspect]
     Active Substance: OBINUTUZUMAB
     Dosage: ON DAY 8, CYCLE 1; ON DAY 15, CYCLE 1; ON DAY 1, CYCLE 2?6
     Route: 042
  9. VENETOCLAX. [Suspect]
     Active Substance: VENETOCLAX
     Dosage: DAYS 1?28, CYCLES 4?14
     Route: 048

REACTIONS (1)
  - Lymphocyte count increased [Recovered/Resolved]

NARRATIVE: CASE EVENT DATE: 20200513
